FAERS Safety Report 6433204-7 (Version None)
Quarter: 2009Q4

REPORT INFORMATION
  Report Type: 
  Country: None (occurrence: None)
  Receive Date: 20091109
  Receipt Date: 20091105
  Transmission Date: 20100525
  Serious: Yes (Life-Threatening, Hospitalization)
  Sender: FDA-Public Use
  Company Number: PHHY2009NL48396

PATIENT
  Sex: Female
  Weight: 28 kg

DRUGS (2)
  1. RITALIN [Suspect]
     Indication: ATTENTION DEFICIT/HYPERACTIVITY DISORDER
     Dosage: 3 DD 10 MG
     Dates: start: 20090101, end: 20090201
  2. NOVORAPID [Concomitant]
     Dosage: 100 E/ML 10 ML
     Dates: start: 20050301

REACTIONS (2)
  - DECREASED APPETITE [None]
  - DIABETES MELLITUS INADEQUATE CONTROL [None]
